FAERS Safety Report 8539191-X (Version None)
Quarter: 2012Q3

REPORT INFORMATION
  Report Type: 
  Country: None (occurrence: None)
  Receive Date: 20120726
  Receipt Date: 20120712
  Transmission Date: 20120928
  Serious: No
  Sender: FDA-Public Use
  Company Number: US-BAYER-2012-071069

PATIENT
  Age: 74 Year
  Sex: Male
  Weight: 104 kg

DRUGS (3)
  1. ALEVE (CAPLET) [Suspect]
     Indication: ARTHRITIS
     Dosage: 1 DF, BID
     Route: 048
     Dates: start: 20020701
  2. PROSTATE MEDICATION [Concomitant]
  3. ANTI-DIABETICS [Concomitant]

REACTIONS (2)
  - NO ADVERSE EVENT [None]
  - GASTROOESOPHAGEAL REFLUX DISEASE [None]
